FAERS Safety Report 17268965 (Version 1)
Quarter: 2020Q1

REPORT INFORMATION
  Report Type: Spontaneous
  Country: US (occurrence: US)
  Receive Date: 20191223
  Receipt Date: 20191223
  Transmission Date: 20200409
  Serious: Yes (Death)
  Sender: FDA-Public Use
  Company Number: None

PATIENT
  Age: 70 Year
  Sex: Female

DRUGS (13)
  1. CLARITIN [Concomitant]
     Active Substance: LORATADINE
  2. ZOFRAN [Concomitant]
     Active Substance: ONDANSETRON HYDROCHLORIDE
  3. RYDAPT [Suspect]
     Active Substance: MIDOSTAURIN
     Indication: MALIGNANT MAST CELL NEOPLASM
     Route: 048
  4. BISACODYL. [Concomitant]
     Active Substance: BISACODYL
  5. PREDNISONE. [Concomitant]
     Active Substance: PREDNISONE
  6. OXYCODONE [Concomitant]
     Active Substance: OXYCODONE
  7. CLONAZEPAM. [Concomitant]
     Active Substance: CLONAZEPAM
  8. RITALIN [Concomitant]
     Active Substance: METHYLPHENIDATE HYDROCHLORIDE
  9. PROCTOCORT [Concomitant]
     Active Substance: HYDROCORTISONE
  10. MIRALAX [Concomitant]
     Active Substance: POLYETHYLENE GLYCOL 3350
  11. CYMBALTA [Concomitant]
     Active Substance: DULOXETINE HYDROCHLORIDE
  12. SENNA [Concomitant]
     Active Substance: SENNA LEAF\SENNOSIDES\SENNOSIDES A AND B
  13. XTAMPZA [Concomitant]
     Active Substance: OXYCODONE

REACTIONS (1)
  - Death [None]
